FAERS Safety Report 11132645 (Version 8)
Quarter: 2022Q3

REPORT INFORMATION
  Report Type: Report from Study
  Country: DE (occurrence: DE)
  Receive Date: 20150522
  Receipt Date: 20220821
  Transmission Date: 20221026
  Serious: Yes (Hospitalization, Other)
  Sender: FDA-Public Use
  Company Number: PHHO2015DE007259

PATIENT
  Age: 25 Year
  Sex: Male
  Weight: 65 kg

DRUGS (70)
  1. CERTICAN [Suspect]
     Active Substance: EVEROLIMUS
     Indication: Renal transplant
     Dosage: 3 MG, QD (1.5-0-1.5)
     Route: 048
     Dates: start: 20150423, end: 20150423
  2. CERTICAN [Suspect]
     Active Substance: EVEROLIMUS
     Dosage: 3.5 MG, QD (1.5-0-2)
     Route: 048
     Dates: start: 20150424, end: 20150424
  3. CERTICAN [Suspect]
     Active Substance: EVEROLIMUS
     Dosage: 5 MG, QD (2-0-3)
     Route: 048
     Dates: start: 20150425, end: 20150425
  4. CERTICAN [Suspect]
     Active Substance: EVEROLIMUS
     Dosage: 8 MG, QD (3-0-5)
     Route: 048
     Dates: start: 20150426, end: 20150426
  5. CERTICAN [Suspect]
     Active Substance: EVEROLIMUS
     Dosage: 11 MG, QD (5-0-6)
     Route: 048
     Dates: start: 20150427, end: 20150427
  6. CERTICAN [Suspect]
     Active Substance: EVEROLIMUS
     Dosage: 12 MG, QD (6-0-6)
     Route: 048
     Dates: start: 20150428, end: 20150501
  7. CERTICAN [Suspect]
     Active Substance: EVEROLIMUS
     Dosage: 16 MG, QD (8-0-8)
     Route: 048
     Dates: start: 20150502, end: 20150503
  8. CERTICAN [Suspect]
     Active Substance: EVEROLIMUS
     Dosage: 18 MG, QD (9-0-9)
     Route: 048
     Dates: start: 20150504, end: 20150509
  9. CERTICAN [Suspect]
     Active Substance: EVEROLIMUS
     Dosage: 16 MG, QD (8-0-8)
     Route: 048
     Dates: start: 20150510, end: 20150510
  10. CERTICAN [Suspect]
     Active Substance: EVEROLIMUS
     Dosage: 8 MG, QD (8-0-0)
     Route: 048
     Dates: start: 20150511, end: 20150511
  11. CERTICAN [Suspect]
     Active Substance: EVEROLIMUS
     Dosage: 8 MG, QD (4-0-0)
     Route: 048
     Dates: start: 20150512, end: 20150512
  12. CERTICAN [Suspect]
     Active Substance: EVEROLIMUS
     Dosage: UNK
     Route: 048
     Dates: start: 20150513, end: 20150513
  13. CERTICAN [Suspect]
     Active Substance: EVEROLIMUS
     Dosage: UNK
     Route: 048
     Dates: start: 20150514, end: 20150514
  14. CERTICAN [Suspect]
     Active Substance: EVEROLIMUS
     Dosage: 8 MG, QD
     Route: 048
     Dates: start: 20150515, end: 20150531
  15. CERTICAN [Suspect]
     Active Substance: EVEROLIMUS
     Dosage: 3 MG, BID
     Route: 048
     Dates: start: 20150602, end: 20150604
  16. CERTICAN [Suspect]
     Active Substance: EVEROLIMUS
     Dosage: 7.5 MG (3-0-2.5)
     Route: 048
     Dates: start: 20150605, end: 20150605
  17. CERTICAN [Suspect]
     Active Substance: EVEROLIMUS
     Dosage: 2.5 MG, BID
     Route: 048
     Dates: start: 20150606
  18. TACROLIMUS [Suspect]
     Active Substance: TACROLIMUS
     Indication: Renal transplant
     Dosage: 4 MG, QD (2-0-2)
     Route: 048
     Dates: start: 20150423, end: 20150423
  19. TACROLIMUS [Suspect]
     Active Substance: TACROLIMUS
     Dosage: 6 MG, QD (2-0-4)
     Route: 048
     Dates: start: 20150424, end: 20150424
  20. TACROLIMUS [Suspect]
     Active Substance: TACROLIMUS
     Dosage: 8 MG, QD (4-0-4)
     Route: 048
     Dates: start: 20150425, end: 20150426
  21. TACROLIMUS [Suspect]
     Active Substance: TACROLIMUS
     Dosage: 9 MG, QD (4-0-5)
     Route: 048
     Dates: start: 20150427, end: 20150427
  22. TACROLIMUS [Suspect]
     Active Substance: TACROLIMUS
     Dosage: 15 MG, QD (7-0-8)
     Route: 048
     Dates: start: 20150428, end: 20150428
  23. TACROLIMUS [Suspect]
     Active Substance: TACROLIMUS
     Dosage: 20 MG, QD (8-0-12)
     Route: 048
     Dates: start: 20150429, end: 20150429
  24. TACROLIMUS [Suspect]
     Active Substance: TACROLIMUS
     Dosage: 24 MG, QD (12-0-12)
     Route: 048
     Dates: start: 20150430, end: 20150501
  25. TACROLIMUS [Suspect]
     Active Substance: TACROLIMUS
     Dosage: 22 MG, QD (12-0-10)
     Route: 048
     Dates: start: 20150502, end: 20150502
  26. TACROLIMUS [Suspect]
     Active Substance: TACROLIMUS
     Dosage: 18 MG, QD (10-0-8)
     Route: 048
     Dates: start: 20150503, end: 20150503
  27. TACROLIMUS [Suspect]
     Active Substance: TACROLIMUS
     Dosage: 16 MG, QD (8-0-8)
     Route: 048
     Dates: start: 20150504, end: 20150505
  28. TACROLIMUS [Suspect]
     Active Substance: TACROLIMUS
     Dosage: 15 MG, QD (8-0-7)
     Route: 048
     Dates: start: 20150506, end: 20150506
  29. TACROLIMUS [Suspect]
     Active Substance: TACROLIMUS
     Dosage: 15 MG, QD (8-0-7)
     Route: 048
     Dates: start: 20150506, end: 20150506
  30. TACROLIMUS [Suspect]
     Active Substance: TACROLIMUS
     Dosage: 14 MG, QD (7-0-7)
     Route: 048
     Dates: start: 20150507, end: 20150510
  31. TACROLIMUS [Suspect]
     Active Substance: TACROLIMUS
     Dosage: 7 MG, QD (7-0-0)
     Route: 048
     Dates: start: 20150511, end: 20150511
  32. TACROLIMUS [Suspect]
     Active Substance: TACROLIMUS
     Dosage: 8 MG, QD (4-0-4)
     Route: 048
     Dates: start: 20150512, end: 20150513
  33. TACROLIMUS [Suspect]
     Active Substance: TACROLIMUS
     Dosage: 7 MG, BID (4-0-3)
     Route: 048
     Dates: start: 20150514, end: 20150514
  34. TACROLIMUS [Suspect]
     Active Substance: TACROLIMUS
     Dosage: 8 MG, QD (3-0-5)
     Route: 048
     Dates: start: 20150515, end: 20150515
  35. TACROLIMUS [Suspect]
     Active Substance: TACROLIMUS
     Dosage: 12 MG, QD (5-0-7)
     Route: 048
     Dates: start: 20150516, end: 20150516
  36. TACROLIMUS [Suspect]
     Active Substance: TACROLIMUS
     Dosage: 14 MG, QD (7-0-7)
     Route: 048
     Dates: start: 20150517, end: 20150520
  37. TACROLIMUS [Suspect]
     Active Substance: TACROLIMUS
     Dosage: 11 MG, QD (6-0-5)
     Route: 048
     Dates: start: 20150521, end: 20150521
  38. TACROLIMUS [Suspect]
     Active Substance: TACROLIMUS
     Dosage: 10 MG, QD (5-0-5)
     Route: 048
     Dates: start: 20150522, end: 20150528
  39. TACROLIMUS [Suspect]
     Active Substance: TACROLIMUS
     Dosage: 7 MG, QD (3.5-0-3.5)
     Route: 048
     Dates: start: 20150602, end: 20150604
  40. TACROLIMUS [Suspect]
     Active Substance: TACROLIMUS
     Dosage: 6.5 MG, QD (3.5-0-3)
     Route: 048
     Dates: start: 20150605, end: 20150605
  41. TACROLIMUS [Suspect]
     Active Substance: TACROLIMUS
     Dosage: 6 MG, QD (3.-0-3)
     Route: 048
     Dates: start: 20150606
  42. HEPARIN [Suspect]
     Active Substance: HEPARIN SODIUM
     Indication: Thrombosis prophylaxis
     Dosage: 5000 IE, 3 TIMES A DAY
     Route: 065
     Dates: start: 20150422, end: 20150513
  43. HEPARIN [Suspect]
     Active Substance: HEPARIN SODIUM
     Dosage: 5000 IE, 3 TIMES A DAY
     Route: 065
     Dates: end: 20150522
  44. BASILIXIMAB [Concomitant]
     Active Substance: BASILIXIMAB
     Indication: Renal transplant
     Dosage: 20 MG, ONCE/SINGLE
     Route: 042
     Dates: start: 20150422
  45. METHYLPREDNISOLONE SODIUM SUCCINATE [Concomitant]
     Active Substance: METHYLPREDNISOLONE SODIUM SUCCINATE
     Indication: Renal transplant
     Dosage: 500 MG, QD
     Route: 065
     Dates: start: 20150422, end: 20150422
  46. METHYLPREDNISOLONE SODIUM SUCCINATE [Concomitant]
     Active Substance: METHYLPREDNISOLONE SODIUM SUCCINATE
     Dosage: 250 MG, QD
     Route: 065
     Dates: start: 20150423, end: 20150423
  47. METHYLPREDNISOLONE SODIUM SUCCINATE [Concomitant]
     Active Substance: METHYLPREDNISOLONE SODIUM SUCCINATE
     Dosage: 125 MG, QD
     Route: 065
     Dates: start: 20150424
  48. PREDNISOLONE [Concomitant]
     Active Substance: PREDNISOLONE
     Indication: Renal transplant
     Dosage: 50 MG, QD
     Route: 065
     Dates: start: 20150425, end: 20150427
  49. PREDNISOLONE [Concomitant]
     Active Substance: PREDNISOLONE
     Dosage: 40 MG, QD
     Route: 065
     Dates: start: 20150428, end: 20150501
  50. PREDNISOLONE [Concomitant]
     Active Substance: PREDNISOLONE
     Dosage: 30 MG, QD
     Route: 065
     Dates: start: 20150502, end: 20150504
  51. PREDNISOLONE [Concomitant]
     Active Substance: PREDNISOLONE
     Dosage: 20 MG, QD
     Route: 065
     Dates: start: 20150505, end: 20150507
  52. PREDNISOLONE [Concomitant]
     Active Substance: PREDNISOLONE
     Dosage: 10 MG, QD
     Route: 065
     Dates: start: 20150508, end: 20150526
  53. PREDNISOLONE [Concomitant]
     Active Substance: PREDNISOLONE
     Dosage: 7.5 MG, QD
     Route: 065
     Dates: start: 20150527
  54. CITALOPRAM [Concomitant]
     Active Substance: CITALOPRAM HYDROBROMIDE
     Indication: Personality disorder
     Dosage: UNK
     Route: 065
     Dates: start: 20120928
  55. AMLODIPINE [Concomitant]
     Active Substance: AMLODIPINE BESYLATE
     Indication: Hypertension
     Dosage: UNK
     Route: 065
     Dates: start: 20120928
  56. BISOPROLOL [Concomitant]
     Active Substance: BISOPROLOL
     Indication: Hypertension
     Dosage: UNK
     Route: 065
     Dates: start: 20120928
  57. DOXAZOSIN MESYLATE [Concomitant]
     Active Substance: DOXAZOSIN MESYLATE
     Indication: Hypertension
     Dosage: UNK
     Route: 065
     Dates: start: 20120928
  58. GABAPENTIN [Concomitant]
     Active Substance: GABAPENTIN
     Indication: Hypoaesthesia
     Dosage: UNK
     Route: 065
     Dates: start: 20140505
  59. CINACALCET HYDROCHLORIDE [Concomitant]
     Active Substance: CINACALCET HYDROCHLORIDE
     Indication: Hypercalcaemia
     Dosage: UNK
     Route: 065
     Dates: start: 20150422
  60. HEPARIN SODIUM [Concomitant]
     Active Substance: HEPARIN SODIUM
     Indication: Prophylaxis
     Dosage: UNK
     Route: 065
     Dates: start: 20150423
  61. PANTOPRAZOLE SODIUM [Concomitant]
     Active Substance: PANTOPRAZOLE SODIUM
     Indication: Prophylaxis
     Dosage: UNK
     Route: 065
     Dates: start: 20150423
  62. CANDESARTAN [Concomitant]
     Active Substance: CANDESARTAN
     Indication: Hypertension
     Dosage: UNK
     Route: 065
     Dates: start: 20150423
  63. SULFAMETHOXAZOLE\TRIMETHOPRIM [Concomitant]
     Active Substance: SULFAMETHOXAZOLE\TRIMETHOPRIM
     Indication: Prophylaxis
     Dosage: UNK
     Route: 065
     Dates: start: 20150423
  64. LACTULOSE HEXAL [Concomitant]
     Indication: Ileus paralytic
     Dosage: UNK
     Route: 065
     Dates: start: 20150426
  65. BENSERAZIDE HYDROCHLORIDE\LEVODOPA [Concomitant]
     Active Substance: BENSERAZIDE HYDROCHLORIDE\LEVODOPA
     Indication: Restless legs syndrome
     Dosage: UNK
     Route: 065
     Dates: start: 20150428
  66. ERYTHROPOIETIN [Concomitant]
     Active Substance: ERYTHROPOIETIN
     Indication: Nephrogenic anaemia
     Dosage: UNK
     Route: 065
     Dates: start: 20150501
  67. AMPHOTERICIN B [Concomitant]
     Active Substance: AMPHOTERICIN B
     Indication: Prophylaxis
     Dosage: UNK
     Route: 065
     Dates: start: 20150503
  68. CIPROBAY [Concomitant]
     Indication: Epididymitis
     Dosage: UNK
     Route: 065
     Dates: start: 20150515
  69. METHYLPREDNISOLONE [Concomitant]
     Active Substance: METHYLPREDNISOLONE
     Indication: Product used for unknown indication
     Dosage: 500 MG, QD
     Route: 065
     Dates: start: 20150512
  70. SODIUM BICARBONATE [Concomitant]
     Active Substance: SODIUM BICARBONATE
     Indication: Acidosis
     Dosage: UNK
     Route: 065
     Dates: start: 20150513

REACTIONS (5)
  - Kidney transplant rejection [Recovered/Resolved]
  - Post procedural haematoma [Recovered/Resolved]
  - Hyperkalaemia [Recovered/Resolved]
  - Complications of transplanted kidney [Recovered/Resolved with Sequelae]
  - Renal artery stenosis [Recovered/Resolved]

NARRATIVE: CASE EVENT DATE: 20150422
